FAERS Safety Report 16007725 (Version 1)
Quarter: 2019Q1

REPORT INFORMATION
  Report Type: Spontaneous
  Country: ES (occurrence: ES)
  Receive Date: 20190226
  Receipt Date: 20190226
  Transmission Date: 20190418
  Serious: Yes (Other)
  Sender: FDA-Public Use
  Company Number: ES-TEVA-2019-ES-1015048

PATIENT
  Sex: Female

DRUGS (1)
  1. METFORMINA 850 MG [Suspect]
     Active Substance: METFORMIN HYDROCHLORIDE
     Dosage: 2 DAILY
     Route: 048
     Dates: start: 20190204

REACTIONS (7)
  - Erythema [Recovered/Resolved]
  - Muscle spasms [Recovered/Resolved]
  - Urticaria [Recovered/Resolved]
  - Dyspnoea [Recovered/Resolved]
  - Malaise [Recovered/Resolved]
  - Abdominal pain upper [Recovered/Resolved]
  - Fatigue [Recovered/Resolved]

NARRATIVE: CASE EVENT DATE: 20190204
